FAERS Safety Report 9478646 (Version 2)
Quarter: 2013Q3

REPORT INFORMATION
  Report Type: Spontaneous
  Country: US (occurrence: US)
  Receive Date: 20130827
  Receipt Date: 20130916
  Transmission Date: 20140515
  Serious: Yes (Hospitalization, Other)
  Sender: FDA-Public Use
  Company Number: US-009507513-1308USA010445

PATIENT
  Age: 66 Year
  Sex: Female

DRUGS (6)
  1. EMEND [Suspect]
     Indication: PROPHYLAXIS OF NAUSEA AND VOMITING
     Dosage: RECEIVED APREPITANT INTREVENOUS ON DAY 1
     Route: 042
  2. EMEND [Interacting]
     Indication: PROPHYLAXIS OF NAUSEA AND VOMITING
     Dosage: PO ON DAY 2
     Route: 048
  3. EMEND [Interacting]
     Dosage: PO ON DAY 3
     Route: 048
     Dates: start: 2013
  4. IFOSFAMIDE [Interacting]
     Dosage: ON DAY1 AS OVERNIGHT INFUSION
     Dates: start: 2013
  5. DOXORUBICIN [Suspect]
     Dosage: ON DAY 1
     Dates: start: 2013
  6. MESNA [Suspect]
     Dosage: 5GM/M2 ON DAY 1 AS OVERNIGHT INFUSION
     Dates: start: 2013

REACTIONS (2)
  - Drug interaction [Unknown]
  - Neurotoxicity [Unknown]
